FAERS Safety Report 4350134-5 (Version None)
Quarter: 2004Q2

REPORT INFORMATION
  Report Type: 
  Country: None (occurrence: None)
  Receive Date: 20040429
  Receipt Date: 20011016
  Transmission Date: 20050107
  Serious: Yes (Other)
  Sender: FDA-Public Use
  Company Number: 11036464

PATIENT
  Age: 42 Year
  Sex: Female

DRUGS (4)
  1. STADOL [Suspect]
     Route: 045
     Dates: start: 19980126
  2. ACETAMINOPHEN + CODEINE NO. 3 [Concomitant]
  3. PROPOXYPHENE [Concomitant]
  4. HYDROCODONE + ACETAMINOPHEN [Concomitant]

REACTIONS (3)
  - CEREBROVASCULAR ACCIDENT [None]
  - DEPENDENCE [None]
  - DRUG WITHDRAWAL SYNDROME [None]
